FAERS Safety Report 23175889 (Version 1)
Quarter: 2023Q4

REPORT INFORMATION
  Report Type: Spontaneous
  Country: TR (occurrence: TR)
  Receive Date: 20231113
  Receipt Date: 20231113
  Transmission Date: 20240109
  Serious: Yes (Other)
  Sender: FDA-Public Use
  Company Number: TR-AMGEN-TURSP2023199575

PATIENT

DRUGS (2)
  1. NEUPOGEN [Suspect]
     Active Substance: FILGRASTIM
     Indication: Haematopoietic stem cell mobilisation
     Dosage: 10 MICROGRAM/KILOGRAM, QD
     Route: 058
  2. LENOGRASTIM [Suspect]
     Active Substance: LENOGRASTIM
     Indication: Haematopoietic stem cell mobilisation
     Route: 065

REACTIONS (1)
  - Genotoxicity [Unknown]
